FAERS Safety Report 13147278 (Version 2)
Quarter: 2017Q1

REPORT INFORMATION
  Report Type: Report from Study
  Country: US (occurrence: US)
  Receive Date: 20170125
  Receipt Date: 20170317
  Transmission Date: 20170428
  Serious: Yes (Other)
  Sender: FDA-Public Use
  Company Number: US-AMGEN-USASL2017010810

PATIENT
  Age: 76 Year
  Sex: Female

DRUGS (1)
  1. REPATHA [Suspect]
     Active Substance: EVOLOCUMAB
     Indication: MENINGIOMA MALIGNANT
     Dosage: 140 MG, EVERY OTHER WEEK
     Route: 058
     Dates: end: 201701

REACTIONS (1)
  - Chronic tonsillitis [Unknown]

NARRATIVE: CASE EVENT DATE: 201611
